FAERS Safety Report 8495435-4 (Version None)
Quarter: 2012Q3

REPORT INFORMATION
  Report Type: 
  Country: None (occurrence: None)
  Receive Date: 20120709
  Receipt Date: 20120706
  Transmission Date: 20120928
  Serious: Yes (Other)
  Sender: FDA-Public Use
  Company Number: US-PFIZER INC-2012162717

PATIENT
  Sex: Female
  Weight: 64.399 kg

DRUGS (26)
  1. CELEBREX [Suspect]
     Indication: OEDEMA PERIPHERAL
     Dosage: 200 MG, DAILY
     Dates: start: 20120201, end: 20120101
  2. AZITHROMYCIN [Suspect]
     Dosage: UNK
  3. CELEBREX [Suspect]
     Indication: ARTHRITIS
  4. SULFASALAZINE [Suspect]
     Indication: OEDEMA PERIPHERAL
     Dosage: UNK
  5. SULFASALAZINE [Suspect]
     Indication: JOINT SWELLING
  6. SULFASALAZINE [Suspect]
     Indication: ARTHRITIS
  7. PREDNISONE [Suspect]
     Indication: OEDEMA PERIPHERAL
     Dosage: UNK
  8. PLAQUENIL [Suspect]
     Indication: OEDEMA PERIPHERAL
     Dosage: UNK
  9. ACETYLSALICYLIC ACID [Concomitant]
     Dosage: UNK
     Dates: start: 20110101
  10. PLAQUENIL [Suspect]
     Indication: ARTHRITIS
  11. ALEVE [Suspect]
     Indication: OEDEMA PERIPHERAL
     Dosage: UNK
  12. ALEVE [Suspect]
     Indication: JOINT SWELLING
  13. MOBIC [Suspect]
     Indication: OEDEMA PERIPHERAL
     Dosage: UNK
  14. METHYLPREDNISOLONE ACETATE [Concomitant]
     Indication: JOINT SWELLING
  15. IBUPROFEN [Suspect]
     Indication: JOINT SWELLING
     Dosage: UNK
  16. PLAQUENIL [Suspect]
     Indication: JOINT SWELLING
  17. DOXYCYCLINE [Concomitant]
     Indication: LYME DISEASE
     Dosage: 100 MG, 2X/DAY
     Dates: start: 20120601
  18. IBUPROFEN [Suspect]
     Indication: ARTHRITIS
  19. ALEVE [Suspect]
     Indication: ARTHRITIS
  20. PREDNISONE [Suspect]
     Indication: JOINT SWELLING
  21. MOBIC [Suspect]
     Indication: JOINT SWELLING
  22. METHYLPREDNISOLONE ACETATE [Concomitant]
     Indication: ARTHRITIS
  23. CELEBREX [Suspect]
     Indication: JOINT SWELLING
  24. IBUPROFEN [Suspect]
     Indication: OEDEMA PERIPHERAL
  25. MOBIC [Suspect]
     Indication: ARTHRITIS
  26. METHYLPREDNISOLONE ACETATE [Concomitant]
     Indication: OEDEMA PERIPHERAL
     Dosage: UNK

REACTIONS (5)
  - DRUG INEFFECTIVE [None]
  - HYPERSENSITIVITY [None]
  - LIP BLISTER [None]
  - ANAPHYLACTIC REACTION [None]
  - DRUG INTOLERANCE [None]
